FAERS Safety Report 25233418 (Version 1)
Quarter: 2025Q2

REPORT INFORMATION
  Report Type: Report from Study
  Country: US (occurrence: US)
  Receive Date: 20250424
  Receipt Date: 20250424
  Transmission Date: 20250717
  Serious: No
  Sender: SUNOVION
  Company Number: US-SUMITOMO PHARMA SWITZERLAND GMBH-2025SPA003967

PATIENT

DRUGS (2)
  1. ORGOVYX [Suspect]
     Active Substance: RELUGOLIX
     Indication: Prostate cancer
     Dosage: 240 MG, SINGLE
     Route: 048
     Dates: start: 20250227, end: 20250227
  2. ORGOVYX [Suspect]
     Active Substance: RELUGOLIX
     Dosage: 120 MG, QD
     Route: 048
     Dates: start: 20250228

REACTIONS (7)
  - Full blood count decreased [Unknown]
  - Anxiety [Recovering/Resolving]
  - Prostatic specific antigen increased [Unknown]
  - Pain in extremity [Recovering/Resolving]
  - Fatigue [Unknown]
  - Insomnia [Unknown]
  - Incorrect dose administered [Unknown]

NARRATIVE: CASE EVENT DATE: 20241101
